FAERS Safety Report 9109077 (Version 1)
Quarter: 2013Q1

REPORT INFORMATION
  Report Type: Report from Study
  Country: NZ (occurrence: NZ)
  Receive Date: 20130222
  Receipt Date: 20130222
  Transmission Date: 20140127
  Serious: Yes (Disabling)
  Sender: FDA-Public Use
  Company Number: NZ-GLAXOSMITHKLINE-B0689854A

PATIENT
  Age: 74 Year
  Sex: Female
  Weight: 90.5 kg

DRUGS (7)
  1. METFORMIN [Concomitant]
     Dosage: 3000MG PER DAY
     Route: 048
     Dates: start: 20061124, end: 20101105
  2. METFORMIN [Concomitant]
     Dosage: 2000MG TWICE PER DAY
     Route: 048
     Dates: start: 20010911, end: 20060227
  3. GLICLAZIDE [Concomitant]
     Dosage: 40MG PER DAY
     Dates: start: 20061104, end: 20061208
  4. GLICLAZIDE [Concomitant]
     Dosage: 60MG PER DAY
     Route: 048
     Dates: start: 20061209, end: 20101109
  5. GLICLAZIDE [Concomitant]
     Dosage: 100MG TWICE PER DAY
     Route: 048
     Dates: start: 20101110
  6. METFORMIN [Concomitant]
     Dosage: 2500MG PER DAY
     Route: 048
  7. ROSIGLITAZONE [Suspect]
     Indication: TYPE 2 DIABETES MELLITUS
     Route: 048
     Dates: start: 20030416, end: 20050831

REACTIONS (2)
  - Radius fracture [Not Recovered/Not Resolved]
  - Fall [Not Recovered/Not Resolved]
